FAERS Safety Report 23706238 (Version 1)
Quarter: 2024Q2

REPORT INFORMATION
  Report Type: Spontaneous
  Country: US (occurrence: None)
  Receive Date: 20240403
  Receipt Date: 20240403
  Transmission Date: 20240716
  Serious: No
  Sender: FDA-Public Use
  Company Number: None

PATIENT
  Age: 63 Year
  Sex: Male
  Weight: 90.9 kg

DRUGS (1)
  1. LENVIMA [Suspect]
     Active Substance: LENVATINIB
     Indication: Malignant palate neoplasm
     Dosage: 20 MG DAILY
     Dates: start: 20240403

REACTIONS (1)
  - Off label use [None]

NARRATIVE: CASE EVENT DATE: 20240403
